FAERS Safety Report 5046394-8 (Version None)
Quarter: 2006Q3

REPORT INFORMATION
  Report Type: 
  Country: None (occurrence: None)
  Receive Date: 20060706
  Receipt Date: 20060706
  Transmission Date: 20061208
  Serious: Yes (Hospitalization)
  Sender: FDA-Public Use
  Company Number: None

PATIENT
  Age: 61 Year
  Sex: Male

DRUGS (10)
  1. PIPERACILLIN AND TAZOBACTAM [Suspect]
     Indication: URINARY TRACT INFECTION
     Dosage: 2.25 GM IV Q8H
     Route: 042
     Dates: start: 20060403, end: 20060410
  2. ALBUTEROL SPIROS [Concomitant]
  3. DARBEPOETIN ALFA, RECOMBINANT [Concomitant]
  4. HUMULIN R [Concomitant]
  5. IPRATROPIUM BR [Concomitant]
  6. METOPROLOL -PLAIN [Concomitant]
  7. MORPHINE SULFATE [Concomitant]
  8. MULTI-VITAMIN [Concomitant]
  9. PROPOFOL [Concomitant]
  10. OMEPRAZOLE [Concomitant]

REACTIONS (1)
  - PSEUDOMEMBRANOUS COLITIS [None]
